FAERS Safety Report 20187547 (Version 1)
Quarter: 2021Q4

REPORT INFORMATION
  Report Type: Report from Study
  Country: US (occurrence: US)
  Receive Date: 20211215
  Receipt Date: 20211215
  Transmission Date: 20220303
  Serious: Yes (Hospitalization)
  Sender: FDA-Public Use
  Company Number: US-BRISTOL-MYERS SQUIBB COMPANY-BMS-2021-133842

PATIENT
  Age: 54 Year
  Sex: Female
  Weight: 84.4 kg

DRUGS (2)
  1. NIVOLUMAB [Suspect]
     Active Substance: NIVOLUMAB
     Indication: Lymphoma
     Dosage: 240 MILLIGRAM, Q2WK
     Route: 042
     Dates: end: 20211129
  2. IBRUTINIB [Suspect]
     Active Substance: IBRUTINIB
     Indication: Lymphoma
     Dosage: 560 MILLIGRAM, Q4WK
     Route: 048
     Dates: end: 20211129

REACTIONS (3)
  - Fatigue [Unknown]
  - Eye movement disorder [Unknown]
  - Hypoaesthesia [Unknown]

NARRATIVE: CASE EVENT DATE: 20211206
